FAERS Safety Report 7981668 (Version 2)
Quarter: 2012Q4

REPORT INFORMATION
  Report Type: 
  Country: CA (occurrence: CA)
  Receive Date: 20110608
  Receipt Date: 20121106
  Transmission Date: 20130627
  Serious: Yes (Other)
  Sender: FDA-Public Use
  Company Number: PHHO2005CA06347

PATIENT
  Sex: Female

DRUGS (7)
  1. SANDOSTATIN LAR (PATIENT BASIS) [Suspect]
     Indication: CARCINOID TUMOUR
     Dosage: 40 mg, every 3 weeks
     Dates: start: 20030620
  2. SANDOSTATIN LAR (PATIENT BASIS) [Suspect]
     Dosage: 40 mg every 4 weeks
  3. DYAZIDE [Concomitant]
  4. TENORMIN [Concomitant]
  5. EFFEXOR-XR [Concomitant]
  6. NAPROSYN [Concomitant]
  7. ATIVAN [Concomitant]

REACTIONS (7)
  - Hypertension [Unknown]
  - Injection site reaction [Unknown]
  - Hot flush [Unknown]
  - Abdominal distension [Unknown]
  - Diarrhoea [Unknown]
  - Flatulence [Unknown]
  - Nausea [Unknown]
